FAERS Safety Report 7635162-6 (Version None)
Quarter: 2011Q3

REPORT INFORMATION
  Report Type: 
  Country: None (occurrence: None)
  Receive Date: 20110726
  Receipt Date: 20110715
  Transmission Date: 20111222
  Serious: Yes (Hospitalization, Other)
  Sender: FDA-Public Use
  Company Number: US-BAYER-201031021NA

PATIENT
  Age: 25 Year
  Sex: Female
  Weight: 102.4 kg

DRUGS (3)
  1. YAZ [Suspect]
     Indication: CONTRACEPTION
     Dates: start: 20070601
  2. NAPROXEN (ALEVE) [Concomitant]
  3. YAZ [Suspect]
     Indication: MENSTRUATION IRREGULAR

REACTIONS (7)
  - ABDOMINAL PAIN [None]
  - NAUSEA [None]
  - DYSPEPSIA [None]
  - VOMITING [None]
  - GALLBLADDER DISORDER [None]
  - CHOLELITHIASIS [None]
  - PAIN [None]
